FAERS Safety Report 9414496 (Version 3)
Quarter: 2013Q3

REPORT INFORMATION
  Report Type: Spontaneous
  Country: JP (occurrence: JP)
  Receive Date: 20130723
  Receipt Date: 20130828
  Transmission Date: 20140515
  Serious: Yes (Life-Threatening, Hospitalization)
  Sender: FDA-Public Use
  Company Number: JP-GLAXOSMITHKLINE-B0909693A

PATIENT
  Age: 65 Year
  Sex: Female

DRUGS (8)
  1. LAMICTAL [Suspect]
     Indication: BIPOLAR DISORDER
     Route: 048
     Dates: start: 20130531, end: 20130611
  2. LAMICTAL [Suspect]
     Indication: BIPOLAR DISORDER
     Route: 048
     Dates: start: 20130612, end: 20130627
  3. LAMICTAL [Suspect]
     Indication: BIPOLAR DISORDER
     Route: 048
     Dates: start: 20130628, end: 20130705
  4. CHINESE MEDICINE [Concomitant]
     Dosage: 2IUAX TWICE PER DAY
     Route: 048
     Dates: end: 20130709
  5. LENDORMIN [Concomitant]
     Dosage: .25MG PER DAY
     Route: 048
     Dates: end: 20130709
  6. RIZE [Concomitant]
     Route: 048
     Dates: end: 20130709
  7. ATORVASTATIN [Concomitant]
     Indication: HYPERLIPIDAEMIA
     Dosage: 5MG PER DAY
     Route: 048
     Dates: end: 20130709
  8. LIPITOR [Concomitant]
     Route: 048

REACTIONS (12)
  - Drug reaction with eosinophilia and systemic symptoms [Recovered/Resolved]
  - Pyrexia [Not Recovered/Not Resolved]
  - Oral mucosa erosion [Unknown]
  - Lip erosion [Unknown]
  - Generalised erythema [Unknown]
  - Blister [Unknown]
  - Lymphadenopathy [Unknown]
  - Lymphadenopathy [Unknown]
  - Headache [Unknown]
  - Purpura [Unknown]
  - Liver disorder [Unknown]
  - Dermatitis [Unknown]
